FAERS Safety Report 6221247-8 (Version None)
Quarter: 2009Q2

REPORT INFORMATION
  Report Type: 
  Country: None (occurrence: None)
  Receive Date: 20090610
  Receipt Date: 20090603
  Transmission Date: 20091009
  Serious: Yes (Death, Other)
  Sender: FDA-Public Use
  Company Number: JP-MERCK-0906USA01159

PATIENT
  Age: 72 Year
  Sex: Female

DRUGS (2)
  1. STROMECTOL [Suspect]
     Indication: ACARODERMATITIS
     Route: 048
     Dates: start: 20090523, end: 20090523
  2. STROMECTOL [Suspect]
     Route: 048
     Dates: start: 20090529, end: 20090529

REACTIONS (2)
  - CARDIAC FAILURE [None]
  - OEDEMA [None]
